FAERS Safety Report 6723610-5 (Version None)
Quarter: 2010Q2

REPORT INFORMATION
  Report Type: 
  Country: None (occurrence: None)
  Receive Date: 20100513
  Receipt Date: 20100504
  Transmission Date: 20101027
  Serious: Yes (Hospitalization)
  Sender: FDA-Public Use
  Company Number: US-JNJFOC-20100501854

PATIENT
  Sex: Male
  Weight: 108.86 kg

DRUGS (7)
  1. DURAGESIC-100 [Suspect]
     Indication: BACK PAIN
     Route: 062
  2. DURAGESIC-100 [Suspect]
     Route: 062
  3. DURAGESIC-100 [Suspect]
     Route: 062
  4. FENTANYL-100 [Suspect]
     Indication: BACK PAIN
     Route: 062
  5. FENTANYL-100 [Suspect]
     Indication: BACK PAIN
     Route: 062
  6. DILAUDID [Concomitant]
     Indication: PAIN
     Route: 048
  7. GLYCOLAX [Concomitant]
     Indication: CONSTIPATION
     Route: 065

REACTIONS (11)
  - BLOOD CHOLESTEROL INCREASED [None]
  - BLOOD PRESSURE INCREASED [None]
  - CORONARY ARTERY OCCLUSION [None]
  - HYPOTHYROIDISM [None]
  - MUSCLE SPASMS [None]
  - NEPHROLITHIASIS [None]
  - NEUROPATHY PERIPHERAL [None]
  - RENAL PAIN [None]
  - SLEEP APNOEA SYNDROME [None]
  - URINARY TRACT DISORDER [None]
  - WRONG TECHNIQUE IN DRUG USAGE PROCESS [None]
